FAERS Safety Report 7645025-8 (Version None)
Quarter: 2011Q3

REPORT INFORMATION
  Report Type: 
  Country: None (occurrence: None)
  Receive Date: 20110729
  Receipt Date: 20110725
  Transmission Date: 20111222
  Serious: Yes (Hospitalization, Other)
  Sender: FDA-Public Use
  Company Number: JP-GLAXOSMITHKLINE-B0729722A

PATIENT
  Age: 73 Year
  Sex: Female
  Weight: 41.1 kg

DRUGS (6)
  1. ALOSITOL [Concomitant]
     Indication: RHEUMATOID ARTHRITIS
     Dosage: 100MG PER DAY
     Route: 048
     Dates: start: 20101208, end: 20110126
  2. KALIMATE [Concomitant]
     Indication: HYPERKALAEMIA
     Dosage: 3IUAX PER DAY
     Route: 048
     Dates: start: 20101208, end: 20110126
  3. VALTREX [Suspect]
     Indication: HERPES ZOSTER
     Dosage: 500MG TWICE PER DAY
     Route: 048
     Dates: start: 20110124, end: 20110124
  4. ENBREL [Concomitant]
     Indication: RHEUMATOID ARTHRITIS
     Route: 058
     Dates: start: 20100204
  5. LANSOPRAZOLE [Concomitant]
     Indication: GASTRITIS
     Dosage: 15MG PER DAY
     Route: 048
     Dates: start: 20101208
  6. JUSO-JO [Concomitant]
     Indication: ACIDOSIS
     Route: 048
     Dates: start: 20101208, end: 20110126

REACTIONS (5)
  - DRUG LEVEL INCREASED [None]
  - DYSSTASIA [None]
  - ALTERED STATE OF CONSCIOUSNESS [None]
  - TOXIC ENCEPHALOPATHY [None]
  - HALLUCINATION, VISUAL [None]
